FAERS Safety Report 9658941 (Version 2)
Quarter: 2013Q4

REPORT INFORMATION
  Report Type: Spontaneous
  Country: US (occurrence: US)
  Receive Date: 20131031
  Receipt Date: 20131125
  Transmission Date: 20140711
  Serious: Yes (Other)
  Sender: FDA-Public Use
  Company Number: US-AMGEN-USASP2013075569

PATIENT
  Age: 35 Year
  Sex: Female
  Weight: 70.3 kg

DRUGS (9)
  1. NPLATE [Suspect]
     Indication: IMMUNE THROMBOCYTOPENIC PURPURA
     Dosage: 270 MUG, UNK
     Route: 058
     Dates: start: 20131003
  2. ATIVAN [Concomitant]
  3. CLONAZEPAM [Concomitant]
  4. DANAZOL [Concomitant]
  5. PREDNISONE [Concomitant]
  6. QUETIAPINE [Concomitant]
  7. TRIHEXYPHENIDYL [Concomitant]
  8. ZIPRASIDONE [Concomitant]
  9. TYLENOL                            /00020001/ [Concomitant]
     Dosage: UNK UNK, AS NECESSARY

REACTIONS (2)
  - Platelet count decreased [Not Recovered/Not Resolved]
  - Therapeutic response decreased [Unknown]
